FAERS Safety Report 4789384-2 (Version None)
Quarter: 2005Q3

REPORT INFORMATION
  Report Type: 
  Country: None (occurrence: None)
  Receive Date: 20050929
  Receipt Date: 20050803
  Transmission Date: 20060218
  Serious: No
  Sender: FDA-Public Use
  Company Number: 05P-163-0301923-00

PATIENT
  Age: 62 Year
  Sex: Female
  Weight: 70.3075 kg

DRUGS (10)
  1. HUMIRA [Suspect]
     Indication: RHEUMATOID ARTHRITIS
     Dosage: 40 MG, 1 IN 2 WK, SUBCUTANEOUS
     Route: 058
     Dates: start: 20050401
  2. METHOTREXATE SODIUM [Concomitant]
  3. PREDNISONE [Concomitant]
  4. SULINDAC [Concomitant]
  5. MSM/GLUCOSAMINE [Concomitant]
  6. OMEGA 3 FISH OIL [Concomitant]
  7. THYROID TAB [Concomitant]
  8. ESTROGENS CONJUGATED [Concomitant]
  9. IRBESARTAN [Concomitant]
  10. HYDROXYCHLOROQUINE PHOSPHATE [Concomitant]

REACTIONS (3)
  - ARTHRITIS [None]
  - INJECTION SITE HAEMORRHAGE [None]
  - INJECTION SITE IRRITATION [None]
